FAERS Safety Report 4388168-7 (Version None)
Quarter: 2004Q2

REPORT INFORMATION
  Report Type: 
  Country: None (occurrence: None)
  Receive Date: 20040623
  Receipt Date: 20040609
  Transmission Date: 20050107
  Serious: Yes (Hospitalization, Other)
  Sender: FDA-Public Use
  Company Number: USA040669708

PATIENT
  Age: 58 Year
  Sex: Female

DRUGS (3)
  1. HUMULIN N [Suspect]
  2. HUMULIN R [Suspect]
  3. HUMULIN R [Suspect]

REACTIONS (7)
  - FEBRILE NEUTROPENIA [None]
  - INTESTINAL OBSTRUCTION [None]
  - LISTLESS [None]
  - LIVER FUNCTION TEST ABNORMAL [None]
  - MEDICATION ERROR [None]
  - MENTAL STATUS CHANGES [None]
  - PANCREATIC CARCINOMA [None]
